FAERS Safety Report 6398227-5 (Version None)
Quarter: 2009Q4

REPORT INFORMATION
  Report Type: 
  Country: None (occurrence: None)
  Receive Date: 20091013
  Receipt Date: 20091008
  Transmission Date: 20100525
  Serious: Yes (Death)
  Sender: FDA-Public Use
  Company Number: PHHY2009CN43561

PATIENT
  Age: 53 Year
  Sex: Male

DRUGS (1)
  1. CYCLOSPORINE [Suspect]

REACTIONS (1)
  - LIVER DISORDER [None]
